FAERS Safety Report 5151634-0 (Version None)
Quarter: 2006Q4

REPORT INFORMATION
  Report Type: 
  Country: None (occurrence: None)
  Receive Date: 20061115
  Receipt Date: 20060817
  Transmission Date: 20070319
  Serious: No
  Sender: FDA-Public Use
  Company Number: US-BRISTOL-MYERS SQUIBB COMPANY-13478474

PATIENT
  Sex: Male

DRUGS (2)
  1. SUSTIVA [Suspect]
     Dosage: ^POSSIBLY^ 2 TABLETS DAILY
  2. TRIZIVIR [Concomitant]

REACTIONS (1)
  - ABNORMAL DREAMS [None]
